FAERS Safety Report 5840131-2 (Version None)
Quarter: 2008Q3

REPORT INFORMATION
  Report Type: 
  Country: None (occurrence: None)
  Receive Date: 20080811
  Receipt Date: 20080730
  Transmission Date: 20090109
  Serious: Yes (Death, Hospitalization)
  Sender: FDA-Public Use
  Company Number: FR-WYE-H05383008

PATIENT
  Sex: Female

DRUGS (6)
  1. CORDARONE [Suspect]
     Indication: ARRHYTHMIA
     Dosage: UNSPECIFIED
     Route: 048
  2. VECTARION [Concomitant]
     Indication: RESPIRATORY FAILURE
     Dosage: UNSPECIFIED
     Route: 048
  3. OXAZEPAM [Concomitant]
     Indication: INSOMNIA
     Dosage: UNSPECIFIED
     Route: 048
  4. KALEORID [Concomitant]
     Dosage: UNSPECIFIED
     Route: 048
  5. PREVISCAN [Suspect]
     Indication: MYOCARDIAL INFARCTION
     Dosage: UNSPECIFIED
     Route: 048
  6. LASIX [Concomitant]
     Indication: MYOCARDIAL INFARCTION
     Dosage: UNSPECIFIED
     Route: 048

REACTIONS (1)
  - HAEMORRHAGIC STROKE [None]
